FAERS Safety Report 5344455-7 (Version None)
Quarter: 2007Q2

REPORT INFORMATION
  Report Type: 
  Country: None (occurrence: None)
  Receive Date: 20070604
  Receipt Date: 20070528
  Transmission Date: 20071010
  Serious: Yes (Hospitalization)
  Sender: FDA-Public Use
  Company Number: FR-PFIZER INC-2006154974

PATIENT
  Age: 75 Year
  Sex: Female

DRUGS (5)
  1. ZYRTEC [Suspect]
     Route: 048
     Dates: start: 20061127, end: 20061128
  2. DALACINE IV [Suspect]
     Dates: start: 20061126, end: 20061203
  3. ATARAX [Suspect]
     Route: 048
     Dates: start: 20061129, end: 20061203
  4. OXACILLIN [Concomitant]
     Dates: start: 20061124, end: 20061125
  5. AUGMENTIN '125' [Concomitant]
     Dates: start: 20061108, end: 20061116

REACTIONS (2)
  - DERMATITIS BULLOUS [None]
  - EOSINOPHILIA [None]
